FAERS Safety Report 9086443 (Version 1)
Quarter: 2013Q1

REPORT INFORMATION
  Report Type: Report from Study
  Country: US (occurrence: US)
  Receive Date: 20130131
  Receipt Date: 20130131
  Transmission Date: 20140127
  Serious: No
  Sender: FDA-Public Use
  Company Number: US-ABBOTT-12P-163-1002424-00

PATIENT
  Age: 58 Year
  Sex: Male

DRUGS (4)
  1. HUMIRA [Suspect]
     Indication: PSORIASIS
     Dates: start: 2011
  2. SIMVASTATIN [Concomitant]
     Indication: BLOOD CHOLESTEROL INCREASED
     Dosage: 20 MG DAILY
  3. CITALOPRAM [Concomitant]
     Indication: ANXIETY
     Dosage: 20MG 1/2 TO 1 TABLET DAILY (BASED ON HOW HE^S FEELING)
  4. MOTRIN [Concomitant]
     Indication: ARTHRALGIA

REACTIONS (1)
  - Hyperhidrosis [Not Recovered/Not Resolved]
